FAERS Safety Report 6573412-8 (Version None)
Quarter: 2010Q1

REPORT INFORMATION
  Report Type: 
  Country: None (occurrence: None)
  Receive Date: 20100204
  Receipt Date: 20100204
  Transmission Date: 20100710
  Serious: Yes (Disabling)
  Sender: FDA-Public Use
  Company Number: None

PATIENT
  Sex: Male
  Weight: 79.3795 kg

DRUGS (1)
  1. GENTAMICIN [Suspect]
     Indication: ENDOCARDITIS
     Dosage: 80 MG EVERY 8 HOURS IV; 60 MG IV EVERY 12 HOURS THREE APR. 1, 2008
     Route: 042
     Dates: start: 20080201, end: 20080401

REACTIONS (1)
  - UNEVALUABLE EVENT [None]
